FAERS Safety Report 8307745-1 (Version None)
Quarter: 2012Q2

REPORT INFORMATION
  Report Type: 
  Country: None (occurrence: None)
  Receive Date: 20120424
  Receipt Date: 20120419
  Transmission Date: 20120825
  Serious: Yes (Other)
  Sender: FDA-Public Use
  Company Number: US-PFIZER INC-2012073641

PATIENT
  Sex: Female
  Weight: 74 kg

DRUGS (2)
  1. CIPROFLOXACIN HYDROCHLORIDE [Concomitant]
     Indication: CYSTITIS
     Dosage: 250 MG, 2X/DAY
  2. PREMARIN [Suspect]
     Indication: VULVOVAGINAL DRYNESS
     Dosage: UNK, DAILY

REACTIONS (2)
  - NERVOUS SYSTEM DISORDER [None]
  - BURNING SENSATION [None]
